FAERS Safety Report 8199601-7 (Version None)
Quarter: 2012Q1

REPORT INFORMATION
  Report Type: 
  Country: None (occurrence: None)
  Receive Date: 20120310
  Receipt Date: 20120227
  Transmission Date: 20120608
  Serious: Yes (Congenital Anomaly)
  Sender: FDA-Public Use
  Company Number: HU-BRISTOL-MYERS SQUIBB COMPANY-16422578

PATIENT
  Sex: Male

DRUGS (5)
  1. AMPICILLIN [Suspect]
     Route: 064
  2. CLOTRIMAZOLE [Suspect]
  3. METRONIDAZOLE [Suspect]
     Route: 064
  4. HYDROXYETHYLRUTOSIDES [Suspect]
     Route: 064
  5. ACETAMINOPHEN [Suspect]
     Route: 064

REACTIONS (3)
  - HYPOSPADIAS [None]
  - MICROTIA [None]
  - SYNDACTYLY [None]
